FAERS Safety Report 10252368 (Version 1)
Quarter: 2014Q2

REPORT INFORMATION
  Report Type: Spontaneous
  Country: NZ (occurrence: None)
  Receive Date: 20140619
  Receipt Date: 20140619
  Transmission Date: 20141212
  Serious: Yes (Other)
  Sender: FDA-Public Use
  Company Number: 2014HINLIT0536

PATIENT
  Age: 18 Year
  Sex: Female

DRUGS (2)
  1. LITHIUM (LITHIUM) [Suspect]
     Indication: BIPOLAR I DISORDER
  2. ISOTRETINOIN (ISOTRETINOIN) [Suspect]
     Indication: PRODUCT USED FOR UNKNOWN INDICATION

REACTIONS (6)
  - Toxicity to various agents [None]
  - Drug interaction [None]
  - Scar [None]
  - Malaise [None]
  - Hangover [None]
  - Hyperuricaemia [None]
